FAERS Safety Report 10673644 (Version 2)
Quarter: 2014Q4

REPORT INFORMATION
  Report Type: Report from Study
  Country: US (occurrence: US)
  Receive Date: 20141224
  Receipt Date: 20141224
  Transmission Date: 20150529
  Serious: Yes (Hospitalization, Other)
  Sender: FDA-Public Use
  Company Number: PHEH2014US022662

PATIENT
  Age: 23 Year
  Sex: Male
  Weight: 105.6 kg

DRUGS (3)
  1. CLOZAPINE. [Suspect]
     Active Substance: CLOZAPINE
     Indication: SCHIZOAFFECTIVE DISORDER
     Dosage: 450 MG, DAILY
     Route: 048
  2. CLOZARIL [Suspect]
     Active Substance: CLOZAPINE
     Dosage: UNK
     Route: 065
  3. CLOZARIL [Suspect]
     Active Substance: CLOZAPINE
     Indication: PRODUCT USED FOR UNKNOWN INDICATION
     Dosage: UNK
     Route: 065
     Dates: start: 2011

REACTIONS (4)
  - White blood cell count decreased [Recovered/Resolved]
  - Neutropenia [Unknown]
  - Agranulocytosis [Recovered/Resolved]
  - Psychotic disorder [Unknown]

NARRATIVE: CASE EVENT DATE: 20141023
